FAERS Safety Report 13134356 (Version 1)
Quarter: 2017Q1

REPORT INFORMATION
  Report Type: Report from Study
  Country: US (occurrence: US)
  Receive Date: 20170120
  Receipt Date: 20170120
  Transmission Date: 20170428
  Serious: Yes (Hospitalization)
  Sender: FDA-Public Use
  Company Number: US-JNJFOC-20170117394

PATIENT
  Age: 76 Year

DRUGS (2)
  1. CNTO-328 [Suspect]
     Active Substance: SILTUXIMAB
     Indication: PLASMA CELL MYELOMA
     Dosage: ON DAYS 1 AND 22
     Route: 042
     Dates: start: 20110225, end: 20110318
  2. VELCADE [Suspect]
     Active Substance: BORTEZOMIB
     Indication: PLASMA CELL MYELOMA
     Dosage: ON DAYS 1, 4, 8, 11, 22, 25, 29 AND 32 OF A 42 DAY CYCLE
     Route: 042
     Dates: start: 20110225, end: 20110328

REACTIONS (1)
  - Haemorrhoidal haemorrhage [Recovered/Resolved]

NARRATIVE: CASE EVENT DATE: 20110304
